FAERS Safety Report 22082573 (Version 6)
Quarter: 2024Q1

REPORT INFORMATION
  Report Type: Report from Study
  Country: US (occurrence: US)
  Receive Date: 20230310
  Receipt Date: 20240221
  Transmission Date: 20240409
  Serious: Yes (Hospitalization, Other)
  Sender: FDA-Public Use
  Company Number: US-TAKEDA-2023TUS024349

PATIENT
  Sex: Male

DRUGS (5)
  1. GLASSIA [Suspect]
     Active Substance: .ALPHA.1-PROTEINASE INHIBITOR HUMAN
     Indication: Alpha-1 antitrypsin deficiency
     Dosage: UNK UNK, 1/WEEK
     Route: 042
     Dates: start: 20220818
  2. GLASSIA [Suspect]
     Active Substance: .ALPHA.1-PROTEINASE INHIBITOR HUMAN
     Indication: Alpha-1 antitrypsin deficiency
     Dosage: UNK UNK, 1/WEEK
     Route: 042
     Dates: start: 20220818
  3. GLASSIA [Suspect]
     Active Substance: .ALPHA.1-PROTEINASE INHIBITOR HUMAN
     Dosage: UNK
     Route: 042
  4. GLASSIA [Suspect]
     Active Substance: .ALPHA.1-PROTEINASE INHIBITOR HUMAN
     Dosage: UNK
     Route: 042
  5. GAMMAGARD LIQUID [Suspect]
     Active Substance: HUMAN IMMUNOGLOBULIN G
     Indication: Product used for unknown indication
     Dosage: UNK UNK, MONTHLY
     Route: 042
     Dates: start: 20220818

REACTIONS (12)
  - Drug resistance [Unknown]
  - Pneumonia fungal [Unknown]
  - Pancreatic pseudoaneurysm [Not Recovered/Not Resolved]
  - Blood urine present [Not Recovered/Not Resolved]
  - Pyrexia [Not Recovered/Not Resolved]
  - Respiratory distress [Unknown]
  - Pneumonia [Unknown]
  - Nephrolithiasis [Not Recovered/Not Resolved]
  - Calculus bladder [Not Recovered/Not Resolved]
  - General physical health deterioration [Unknown]
  - Body temperature increased [Unknown]
  - Chills [Unknown]

NARRATIVE: CASE EVENT DATE: 20220101
